FAERS Safety Report 15526202 (Version 3)
Quarter: 2019Q4

REPORT INFORMATION
  Report Type: Spontaneous
  Country: US (occurrence: US)
  Receive Date: 20181018
  Receipt Date: 20191205
  Transmission Date: 20200122
  Serious: Yes (Other)
  Sender: FDA-Public Use
  Company Number: US-ELI_LILLY_AND_COMPANY-US201810006230

PATIENT
  Age: 65 Year
  Sex: Male

DRUGS (6)
  1. CIALIS [Suspect]
     Active Substance: TADALAFIL
     Indication: ERECTILE DYSFUNCTION
     Dosage: THREE TIMES A MONTH/ 100 MG
     Route: 065
     Dates: start: 20080211, end: 20080826
  2. SIMVASTATIN. [Concomitant]
     Active Substance: SIMVASTATIN
     Indication: BLOOD CHOLESTEROL
     Dosage: UNK, UNKNOWN
     Route: 065
     Dates: start: 1999, end: 2018
  3. AVASTIN [ATORVASTATIN CALCIUM] [Concomitant]
     Active Substance: ATORVASTATIN CALCIUM
     Indication: HYPERTENSION
     Dosage: UNK, UNKNOWN
     Route: 065
     Dates: start: 1999, end: 2018
  4. VIAGRA [Suspect]
     Active Substance: SILDENAFIL CITRATE
     Indication: ERECTILE DYSFUNCTION
     Dosage: THREE TIMES A MONTH/ 100 MG
     Route: 065
     Dates: start: 20060314, end: 20150304
  5. CIALIS [Suspect]
     Active Substance: TADALAFIL
     Indication: HYPERTENSION
  6. VIAGRA [Suspect]
     Active Substance: SILDENAFIL CITRATE
     Indication: HYPERTENSION

REACTIONS (2)
  - Overdose [Unknown]
  - Malignant melanoma stage IV [Unknown]

NARRATIVE: CASE EVENT DATE: 20140415
